FAERS Safety Report 5328042-2 (Version None)
Quarter: 2007Q2

REPORT INFORMATION
  Report Type: 
  Country: None (occurrence: None)
  Receive Date: 20070514
  Receipt Date: 20070430
  Transmission Date: 20071010
  Serious: Yes (Hospitalization)
  Sender: FDA-Public Use
  Company Number: GXKR2007US03898

PATIENT
  Age: 65 Year
  Sex: Female

DRUGS (11)
  1. DIGOXIN [Suspect]
     Indication: ATRIAL FIBRILLATION
     Dosage: 0.625 MG, DAILY
  2. OMEPRAZOLE [Suspect]
     Indication: GASTROOESOPHAGEAL REFLUX DISEASE
     Dosage: 20 MG, QD,
  3. MELOXICAM [Concomitant]
  4. LISINOPRIL [Concomitant]
  5. RALOXIFENE HCL [Concomitant]
  6. ATORVASTATIN CALCIUM [Concomitant]
  7. GEMFIBROZIL [Concomitant]
  8. WARFARIN SODIUM [Concomitant]
  9. OXYBUTYIN (OXYBUTYNIN) [Concomitant]
  10. HYDROCHLOROTHIAZIDE [Concomitant]
  11. POTASSIUM CITRATE [Concomitant]

REACTIONS (12)
  - ASTHENIA [None]
  - BALANCE DISORDER [None]
  - CARDIAC MURMUR [None]
  - DRUG INTERACTION [None]
  - EXTRASYSTOLES [None]
  - HEART RATE ABNORMAL [None]
  - HEART RATE IRREGULAR [None]
  - NAUSEA [None]
  - THERAPEUTIC AGENT TOXICITY [None]
  - VISUAL DISTURBANCE [None]
  - VOMITING [None]
  - XANTHOPSIA [None]
